FAERS Safety Report 21452636 (Version 1)
Quarter: 2022Q4

REPORT INFORMATION
  Report Type: Report from Study
  Country: US (occurrence: US)
  Receive Date: 20221013
  Receipt Date: 20221013
  Transmission Date: 20230112
  Serious: Yes (Hospitalization)
  Sender: FDA-Public Use
  Company Number: US-ELI_LILLY_AND_COMPANY-US202210003339

PATIENT
  Age: 56 Year
  Sex: Female

DRUGS (2)
  1. NECITUMUMAB [Suspect]
     Active Substance: NECITUMUMAB
     Indication: Non-small cell lung cancer
     Dosage: 800 MG, CYCLICAL 9OVER 60 MINUTES ON DAY 1 AND 8
     Route: 042
     Dates: start: 20200317, end: 20200526
  2. OSIMERTINIB [Concomitant]
     Active Substance: OSIMERTINIB
     Indication: Non-small cell lung cancer
     Dosage: 80 MG, DAILY
     Route: 048
     Dates: start: 20200317, end: 20200615

REACTIONS (2)
  - Rash pustular [Recovering/Resolving]
  - Tinea infection [Unknown]

NARRATIVE: CASE EVENT DATE: 20200624
